FAERS Safety Report 7656561-2 (Version None)
Quarter: 2011Q3

REPORT INFORMATION
  Report Type: 
  Country: None (occurrence: None)
  Receive Date: 20110804
  Receipt Date: 20110214
  Transmission Date: 20111222
  Serious: No
  Sender: FDA-Public Use
  Company Number: US-BAUSCH-2011BL000959

PATIENT
  Age: 58 Year
  Sex: Female

DRUGS (1)
  1. OPCON-A [Suspect]
     Indication: EYE ALLERGY
     Route: 047
     Dates: start: 20110209, end: 20110211

REACTIONS (4)
  - EYE PRURITUS [None]
  - EYE DISORDER [None]
  - EYE IRRITATION [None]
  - OCULAR HYPERAEMIA [None]
